FAERS Safety Report 21178206 (Version 1)
Quarter: 2022Q3

REPORT INFORMATION
  Report Type: Spontaneous
  Country: CN (occurrence: CN)
  Receive Date: 20220805
  Receipt Date: 20220805
  Transmission Date: 20221027
  Serious: Yes (Other)
  Sender: FDA-Public Use
  Company Number: CN-BAYER-2022P009751

PATIENT
  Age: 67 Year
  Sex: Female

DRUGS (2)
  1. CIPROFLOXACIN [Suspect]
     Active Substance: CIPROFLOXACIN
     Indication: Urinary tract infection
     Dosage: UNK
     Dates: start: 2022
  2. CEFOTAXIME SODIUM;SULBACTAM SODIUM [Concomitant]
     Indication: Urinary tract infection
     Dosage: UNK
     Dates: start: 2022

REACTIONS (1)
  - Pathogen resistance [None]

NARRATIVE: CASE EVENT DATE: 20220101
